FAERS Safety Report 9831669 (Version 2)
Quarter: 2014Q1

REPORT INFORMATION
  Report Type: Spontaneous
  Country: US (occurrence: US)
  Receive Date: 20140121
  Receipt Date: 20140303
  Transmission Date: 20141002
  Serious: No
  Sender: FDA-Public Use
  Company Number: US-PFIZER INC-2014017231

PATIENT
  Age: 51 Year
  Sex: Female
  Weight: 63.49 kg

DRUGS (3)
  1. GABAPENTIN [Suspect]
     Indication: CARPAL TUNNEL SYNDROME
     Dosage: 400 MG, 4X/DAY
  2. TRAMADOL HCL [Suspect]
     Indication: CARPAL TUNNEL SYNDROME
     Dosage: 50 MG, UNK
  3. HYDROCODONE [Suspect]
     Indication: CARPAL TUNNEL SYNDROME
     Dosage: 2.5 MG, 1X/DAY

REACTIONS (2)
  - Headache [Not Recovered/Not Resolved]
  - Pain [Not Recovered/Not Resolved]
